FAERS Safety Report 5685190-5 (Version None)
Quarter: 2008Q1

REPORT INFORMATION
  Report Type: 
  Country: None (occurrence: None)
  Receive Date: 20080328
  Receipt Date: 20080319
  Transmission Date: 20080703
  Serious: Yes (Hospitalization, Other)
  Sender: FDA-Public Use
  Company Number: US-ABBOTT-08P-163-0443896-00

PATIENT
  Sex: Male
  Weight: 103.28 kg

DRUGS (4)
  1. VICODIN [Suspect]
     Indication: PROCEDURAL PAIN
     Route: 048
     Dates: start: 20070317, end: 20070410
  2. BLINDED TRAIL MEDICATION [Suspect]
     Indication: CARDIAC FAILURE CHRONIC
     Route: 048
     Dates: start: 20070404
  3. PROPACET 100 [Concomitant]
     Indication: DRUG USE FOR UNKNOWN INDICATION
  4. FUROSEMIDE [Concomitant]
     Indication: DRUG USE FOR UNKNOWN INDICATION

REACTIONS (6)
  - ABDOMINAL PAIN [None]
  - CARDIOMEGALY [None]
  - CONSTIPATION [None]
  - GENERALISED OEDEMA [None]
  - PERICARDIAL EFFUSION [None]
  - PLEURAL EFFUSION [None]
